FAERS Safety Report 7032289-7 (Version None)
Quarter: 2010Q4

REPORT INFORMATION
  Report Type: 
  Country: None (occurrence: None)
  Receive Date: 20101007
  Receipt Date: 20100708
  Transmission Date: 20110411
  Serious: No
  Sender: FDA-Public Use
  Company Number: A0871197A

PATIENT
  Age: 56 Year
  Sex: Male

DRUGS (1)
  1. REQUIP XL [Suspect]
     Indication: PARKINSON'S DISEASE
     Dosage: 4MG UNKNOWN
     Route: 048
     Dates: start: 20100301

REACTIONS (2)
  - IMMOBILE [None]
  - THERAPEUTIC RESPONSE DECREASED [None]
